FAERS Safety Report 17925367 (Version 1)
Quarter: 2020Q3

REPORT INFORMATION
  Report Type: Spontaneous
  Country: US (occurrence: US)
  Receive Date: 20200622
  Receipt Date: 20200622
  Transmission Date: 20201104
  Serious: Yes (Other)
  Sender: FDA-Public Use
  Company Number: US-MSNLABS-2020MSNLIT00105

PATIENT
  Age: 79 Year
  Sex: Male

DRUGS (2)
  1. REC?2282. [Suspect]
     Active Substance: REC-2282
     Indication: ACUTE MYELOID LEUKAEMIA
     Dosage: DAYS 1,3,4,5
     Route: 048
  2. DECITABINE FOR INJECTION 50 MG [Suspect]
     Active Substance: DECITABINE
     Indication: ACUTE MYELOID LEUKAEMIA
     Route: 042

REACTIONS (2)
  - Multiple organ dysfunction syndrome [Unknown]
  - Sepsis [Unknown]
